FAERS Safety Report 12459384 (Version 1)
Quarter: 2016Q2

REPORT INFORMATION
  Report Type: Spontaneous
  Country: US (occurrence: None)
  Receive Date: 20160610
  Receipt Date: 20160610
  Transmission Date: 20160815
  Serious: No
  Sender: FDA-Public Use
  Company Number: None

PATIENT
  Age: 33 Year
  Sex: Female

DRUGS (1)
  1. COPAXONE [Suspect]
     Active Substance: GLATIRAMER ACETATE
     Indication: MULTIPLE SCLEROSIS
     Route: 058
     Dates: start: 20150918, end: 20160511

REACTIONS (5)
  - Candida infection [None]
  - Hypersensitivity [None]
  - Therapy cessation [None]
  - Urticaria [None]
  - Pharyngeal disorder [None]

NARRATIVE: CASE EVENT DATE: 20160511
